FAERS Safety Report 16199164 (Version 1)
Quarter: 2019Q2

REPORT INFORMATION
  Report Type: Spontaneous
  Country: GB (occurrence: GB)
  Receive Date: 20190415
  Receipt Date: 20190415
  Transmission Date: 20190711
  Serious: Yes (Other)
  Sender: FDA-Public Use
  Company Number: GB-MYLANLABS-2019M1034929

PATIENT
  Age: 28 Year
  Sex: Male

DRUGS (5)
  1. PROVIGIL [Suspect]
     Active Substance: MODAFINIL
     Indication: ANXIETY
     Dosage: UNK
  2. PROVIGIL [Suspect]
     Active Substance: MODAFINIL
     Indication: SUICIDAL IDEATION
  3. LAMOTRIGINE. [Suspect]
     Active Substance: LAMOTRIGINE
     Indication: PRODUCT USED FOR UNKNOWN INDICATION
     Dosage: UNK
     Route: 065
  4. PROVIGIL [Suspect]
     Active Substance: MODAFINIL
     Indication: DEPRESSION
     Dosage: 400-800 MG PER DAY
     Route: 065
  5. SERTRALINE [Suspect]
     Active Substance: SERTRALINE HYDROCHLORIDE
     Indication: PRODUCT USED FOR UNKNOWN INDICATION
     Dosage: UNK
     Route: 065

REACTIONS (7)
  - Anxiety [Unknown]
  - Therapeutic response unexpected [Unknown]
  - Overdose [Unknown]
  - Condition aggravated [Unknown]
  - Somnolence [Unknown]
  - Product use in unapproved indication [Unknown]
  - Suicidal ideation [Unknown]
